FAERS Safety Report 25246683 (Version 1)
Quarter: 2025Q2

REPORT INFORMATION
  Report Type: Spontaneous
  Country: CN (occurrence: CN)
  Receive Date: 20250428
  Receipt Date: 20250428
  Transmission Date: 20250717
  Serious: Yes (Hospitalization)
  Sender: NOVARTIS
  Company Number: CN-002147023-NVSC2025CN066454

PATIENT
  Age: 52 Year
  Sex: Male
  Weight: 60.5 kg

DRUGS (2)
  1. KISQALI [Suspect]
     Active Substance: RIBOCICLIB SUCCINATE
     Indication: Breast cancer
     Dosage: 600 MG, QD
     Route: 048
     Dates: start: 20250324, end: 20250408
  2. ABEMACICLIB [Concomitant]
     Active Substance: ABEMACICLIB
     Indication: Product used for unknown indication
     Route: 065

REACTIONS (4)
  - Diarrhoea [Unknown]
  - Chest discomfort [Unknown]
  - Dyspnoea [Unknown]
  - Discomfort [Unknown]

NARRATIVE: CASE EVENT DATE: 20250408
